FAERS Safety Report 7909026-4 (Version None)
Quarter: 2011Q4

REPORT INFORMATION
  Report Type: 
  Country: None (occurrence: None)
  Receive Date: 20111111
  Receipt Date: 20111102
  Transmission Date: 20120403
  Serious: Yes (Hospitalization, Disabling, Other)
  Sender: FDA-Public Use
  Company Number: US-PFIZER INC-2011116370

PATIENT
  Sex: Female

DRUGS (7)
  1. LEVAQUIN [Suspect]
     Indication: BACTERIAL INFECTION
  2. LEVAQUIN [Suspect]
     Indication: GASTROENTERITIS
  3. AMOXICILLIN [Concomitant]
     Indication: PSORIASIS
     Dosage: 500 MG, UNK
     Route: 065
     Dates: start: 20090306
  4. LEVAQUIN [Suspect]
     Indication: URINARY TRACT INFECTION
     Dosage: 500 MG, UNK
     Route: 042
  5. VANCOMYCIN HYDROCHLORIDE [Concomitant]
     Indication: STAPHYLOCOCCAL INFECTION
     Route: 042
  6. IBUPROFEN [Suspect]
  7. PANTOPRAZOLE [Suspect]
     Indication: PRODUCT USED FOR UNKNOWN INDICATION
     Route: 065

REACTIONS (10)
  - STEVENS-JOHNSON SYNDROME [None]
  - CARDIAC FAILURE CONGESTIVE [None]
  - ANAEMIA [None]
  - PARALYSIS [None]
  - CEREBRAL HAEMORRHAGE [None]
  - CARDIAC VALVE DISEASE [None]
  - RENAL FAILURE [None]
  - SUBARACHNOID HAEMORRHAGE [None]
  - CEREBROVASCULAR ACCIDENT [None]
  - TOXIC EPIDERMAL NECROLYSIS [None]
